FAERS Safety Report 25928566 (Version 3)
Quarter: 2025Q4

REPORT INFORMATION
  Report Type: Report from Study
  Country: US (occurrence: US)
  Receive Date: 20251016
  Receipt Date: 20251224
  Transmission Date: 20260118
  Serious: Yes (Hospitalization, Other)
  Sender: JAZZ
  Company Number: US-JAZZ PHARMACEUTICALS-2025-US-023940

PATIENT
  Age: 41 Year
  Sex: Male

DRUGS (27)
  1. XYWAV [Suspect]
     Active Substance: CALCIUM OXYBATE\MAGNESIUM OXYBATE\POTASSIUM OXYBATE\SODIUM OXYBATE
     Indication: Narcolepsy
     Dosage: UNK
  2. XYWAV [Suspect]
     Active Substance: CALCIUM OXYBATE\MAGNESIUM OXYBATE\POTASSIUM OXYBATE\SODIUM OXYBATE
     Indication: Cataplexy
     Dosage: 4.5 GRAM, BID
  3. XYWAV [Suspect]
     Active Substance: CALCIUM OXYBATE\MAGNESIUM OXYBATE\POTASSIUM OXYBATE\SODIUM OXYBATE
     Indication: Somnolence
     Dosage: 2.25 GRAM, BID
  4. ALCOHOL [Suspect]
     Active Substance: ALCOHOL
     Indication: Product used for unknown indication
     Dosage: UNK
  5. BACTRIM DS [Concomitant]
     Active Substance: SULFAMETHOXAZOLE\TRIMETHOPRIM
     Indication: Product used for unknown indication
     Dosage: UNK
  6. ADDERALL [Concomitant]
     Active Substance: AMPHETAMINE ASPARTATE\AMPHETAMINE SULFATE\DEXTROAMPHETAMINE SACCHARATE\DEXTROAMPHETAMINE SULFATE
     Indication: Product used for unknown indication
     Dosage: UNK
  7. LORAZEPAM [Concomitant]
     Active Substance: LORAZEPAM
     Indication: Product used for unknown indication
     Dosage: UNK
  8. LORAZEPAM [Concomitant]
     Active Substance: LORAZEPAM
     Dosage: STRENGTH: 1 MG, TABLET
  9. TESTOSTERONE CYPIONATE [Concomitant]
     Active Substance: TESTOSTERONE CYPIONATE
     Indication: Product used for unknown indication
     Dosage: UNK
  10. CEFDINIR [Concomitant]
     Active Substance: CEFDINIR
     Indication: Product used for unknown indication
     Dosage: UNK
  11. AMPHETAMINE [Concomitant]
     Active Substance: AMPHETAMINE
     Indication: Somnolence
     Dosage: ONE CAPSULE BY MOUTH EVERY DAY
  12. AMPHETAMINE [Concomitant]
     Active Substance: AMPHETAMINE
     Indication: Narcolepsy
  13. DEXTROAMPHETAMINE [Concomitant]
     Active Substance: DEXTROAMPHETAMINE
     Indication: Somnolence
     Dosage: ONE TABLET BY MOUTH EVERY EVENING AS NEEDED
  14. DEXTROAMPHETAMINE [Concomitant]
     Active Substance: DEXTROAMPHETAMINE
     Indication: Narcolepsy
  15. CHOLECALCIFEROL [Concomitant]
     Active Substance: CHOLECALCIFEROL
     Indication: Vitamin supplementation
     Dosage: (D3-2,000UNIT) ??? ???E 1 TABLET (50 MCG/2000 UNITS) BY MOUTH EVERY DAY
  16. DOCUSATE SODIUM [Concomitant]
     Active Substance: DOCUSATE SODIUM
     Indication: Constipation
     Dosage: 50MG/SENNOSIDES 8.6MG T?? ???E 2 TABLETS BY MOUTH TWICE DAILY HOLD OF LOOSE STOOLS
  17. DULOXETINE HYDROCHLORIDE [Concomitant]
     Active Substance: DULOXETINE HYDROCHLORIDE
     Indication: Pain
     Dosage: ?AKE TWO CAPSULES BY MOUTH EVERY MORNING
  18. GABAPENTIN [Concomitant]
     Active Substance: GABAPENTIN
     Indication: Neuralgia
     Dosage: THREE CAPSULES BY MOUTH THREE TIMES A DAY
  19. LAMOTRIGINE [Concomitant]
     Active Substance: LAMOTRIGINE
     Indication: Seizure
     Dosage: TAKE ONE-HALF TABLET BY MOUTH EVERY DAY
  20. LIDOCAINE [Concomitant]
     Active Substance: LIDOCAINE
     Indication: Pain
     Dosage: APPLY 1 PATCH TO SKIN EVERY DAY AS NEEDED
  21. METHOCARBAMOL [Concomitant]
     Active Substance: METHOCARBAMOL
     Indication: Muscle spasms
     Dosage: TAKE TWO TABLETS BY MOUTH THREE TIMES A DAY AS NEEDED
  22. NAPROXEN [Concomitant]
     Active Substance: NAPROXEN
     Indication: Pain
     Dosage: ??K? ONE TABLET BY MOUTH TWICE DAILY AS NEEDED
  23. NICOTINE [Concomitant]
     Active Substance: NICOTINE
     Indication: Smoking cessation therapy
     Dosage: 4MG GUM CHEW 1 PIECE IN MOUTH EVERY HOUR AS NEEDED
  24. PITOLISANT [Concomitant]
     Active Substance: PITOLISANT
     Indication: Narcolepsy
     Dosage: TAB ?AKE TWO TABLETS BY MOUTH EVERY DAY
  25. PRAZOSIN HYDROCHLORIDE [Concomitant]
     Active Substance: PRAZOSIN HYDROCHLORIDE
     Indication: Nightmare
     Dosage: TAKE ONE CAPSULE BY MOUTH AT BEDTIM?
  26. TRAZODONE [Concomitant]
     Active Substance: TRAZODONE HYDROCHLORIDE
     Indication: Insomnia
     Dosage: TAKE ONE-HALF TABLET BY MOUTH AT BEDTIME
  27. PROBIOTICS [PROBIOTICS NOS] [Concomitant]
     Indication: Product used for unknown indication
     Dosage: CAP/TAB 1 CAPSULE/TABLET MOUTH EVERYDAY

REACTIONS (2)
  - Hospitalisation [Unknown]
  - Alcohol use [Unknown]

NARRATIVE: CASE EVENT DATE: 20251001
